FAERS Safety Report 16773150 (Version 1)
Quarter: 2019Q3

REPORT INFORMATION
  Report Type: Spontaneous
  Country: US (occurrence: US)
  Receive Date: 20190904
  Receipt Date: 20190904
  Transmission Date: 20191005
  Serious: Yes (Other)
  Sender: FDA-Public Use
  Company Number: US-009507513-1909USA000463

PATIENT
  Sex: Female
  Weight: 67.13 kg

DRUGS (2)
  1. KEYTRUDA [Suspect]
     Active Substance: PEMBROLIZUMAB
     Indication: CLEAR CELL SARCOMA OF SOFT TISSUE
     Dosage: UNK UNK, Q3W
     Route: 042
  2. SUTENT [Suspect]
     Active Substance: SUNITINIB MALATE
     Indication: CLEAR CELL SARCOMA OF SOFT TISSUE
     Dosage: 37.5 MILLIGRAM, QD
     Route: 048
     Dates: start: 201902, end: 201908

REACTIONS (2)
  - Malignant neoplasm progression [Unknown]
  - Product used for unknown indication [Unknown]

NARRATIVE: CASE EVENT DATE: 2019
